FAERS Safety Report 9534244 (Version 1)
Quarter: 2013Q3

REPORT INFORMATION
  Report Type: Spontaneous
  Country: US (occurrence: US)
  Receive Date: 20130918
  Receipt Date: 20130918
  Transmission Date: 20140515
  Serious: Yes (Other)
  Sender: FDA-Public Use
  Company Number: US-GLAXOSMITHKLINE-A1041348A

PATIENT
  Age: 58 Year
  Sex: Female

DRUGS (4)
  1. LAMOTRIGINE [Suspect]
     Indication: EPILEPSY
     Dosage: 200MG FOUR TIMES PER DAY
     Dates: start: 201306, end: 20130907
  2. PERCOCET [Concomitant]
  3. ZOLOFT [Concomitant]
  4. XANAX [Concomitant]

REACTIONS (2)
  - Grand mal convulsion [Recovered/Resolved]
  - Petit mal epilepsy [Recovered/Resolved]
